FAERS Safety Report 13668778 (Version 1)
Quarter: 2017Q2

REPORT INFORMATION
  Report Type: Other
  Country: None (occurrence: IT)
  Receive Date: 20170620
  Receipt Date: 20170620
  Transmission Date: 20170830
  Serious: Yes (Other)
  Sender: FDA-Public Use
  Company Number: IT-AUROBINDO-AUR-APL-2012-02557

PATIENT
  Age: 10 Year
  Sex: Male

DRUGS (1)
  1. RISPERIDONE. [Suspect]
     Active Substance: RISPERIDONE
     Indication: AGGRESSION
     Dosage: 1.25 MG,DAILY,
     Route: 048
     Dates: start: 20120405, end: 20120427

REACTIONS (2)
  - Asthenia [Unknown]
  - Conduction disorder [Unknown]

NARRATIVE: CASE EVENT DATE: 20120427
